FAERS Safety Report 13675573 (Version 1)
Quarter: 2017Q2

REPORT INFORMATION
  Report Type: Spontaneous
  Country: GR (occurrence: GR)
  Receive Date: 20170621
  Receipt Date: 20170621
  Transmission Date: 20170830
  Serious: Yes (Other)
  Sender: FDA-Public Use
  Company Number: GR-PFIZER INC-2017266280

PATIENT
  Age: 54 Year
  Sex: Male

DRUGS (5)
  1. TAVOR (LORAZEPAM) [Suspect]
     Active Substance: LORAZEPAM
     Dosage: 4 DF, DAILY
  2. DEPAKINE /00228501/ [Suspect]
     Active Substance: VALPROIC ACID
     Dosage: 1 DF IN THE MORNING AND 2 DF AT NIGHT
  3. GEODON [Suspect]
     Active Substance: ZIPRASIDONE HYDROCHLORIDE\ZIPRASIDONE MESYLATE
     Dosage: 40 MG, 1X/DAY
     Dates: start: 201706
  4. LYRICA [Suspect]
     Active Substance: PREGABALIN
     Indication: ANXIETY
     Dosage: 50 MG, 3X/DAY
  5. SERTRALINE [Suspect]
     Active Substance: SERTRALINE HYDROCHLORIDE
     Dosage: 100 MG, 1X/DAY (MORNING)

REACTIONS (5)
  - Somnolence [Unknown]
  - Drug ineffective [Unknown]
  - Apnoea [Unknown]
  - Condition aggravated [Unknown]
  - Gastrointestinal disorder [Unknown]
